FAERS Safety Report 21533671 (Version 1)
Quarter: 2022Q4

REPORT INFORMATION
  Report Type: Spontaneous
  Country: CA (occurrence: CA)
  Receive Date: 20221101
  Receipt Date: 20221101
  Transmission Date: 20230113
  Serious: Yes (Other)
  Sender: FDA-Public Use
  Company Number: None

PATIENT
  Age: 8 Year
  Sex: Male

DRUGS (3)
  1. METHOTREXATE [Suspect]
     Active Substance: METHOTREXATE
     Indication: Anaplastic large cell lymphoma T- and null-cell types
     Route: 037
  2. CYTARABINE [Suspect]
     Active Substance: CYTARABINE
     Indication: Anaplastic large cell lymphoma T- and null-cell types
     Dosage: POWDER FOR SOLUTION
     Route: 037
  3. HYDROCORTISONE [Suspect]
     Active Substance: HYDROCORTISONE
     Indication: Anaplastic large cell lymphoma T- and null-cell types
     Route: 037

REACTIONS (3)
  - Anaplastic large cell lymphoma T- and null-cell types [Unknown]
  - Central nervous system lymphoma [Unknown]
  - Condition aggravated [Unknown]
